FAERS Safety Report 22357106 (Version 1)
Quarter: 2023Q2

REPORT INFORMATION
  Report Type: Spontaneous
  Country: GB (occurrence: GB)
  Receive Date: 20230524
  Receipt Date: 20230524
  Transmission Date: 20230721
  Serious: Yes (Death, Congenital Anomaly, Other)
  Sender: FDA-Public Use
  Company Number: GB-STRIDES ARCOLAB LIMITED-2023SP007602

PATIENT

DRUGS (5)
  1. TOPIRAMATE [Suspect]
     Active Substance: TOPIRAMATE
     Indication: Product used for unknown indication
     Dosage: UNK (THE PATIENT MOTHER RECEIVED 400 MILLIGRAM PER DAY)
     Route: 064
  2. ACETAZOLAMIDE [Suspect]
     Active Substance: ACETAZOLAMIDE
     Indication: Product used for unknown indication
     Dosage: UNK (THE PATIENT MOTHER RECEIVED 500 MILLIGRAM PER DAY)
     Route: 064
  3. FOLIC ACID [Suspect]
     Active Substance: FOLIC ACID
     Indication: Product used for unknown indication
     Dosage: UNK (THE PATIENT MOTHER RECEIVED 5 MILLIGRAM PER DAY)
     Route: 064
  4. ZONISAMIDE [Suspect]
     Active Substance: ZONISAMIDE
     Indication: Product used for unknown indication
     Dosage: UNK (THE PATIENT MOTHER RECEIVED 100 MILLIGRAM PER DAY)
     Route: 064
  5. CARBAMAZEPINE [Suspect]
     Active Substance: CARBAMAZEPINE
     Indication: Product used for unknown indication
     Dosage: UNK (THE PATIENT MOTHER RECEIVED 800 MILLIGRAM PER DAY)
     Route: 064

REACTIONS (3)
  - Volvulus of small bowel [Fatal]
  - Stillbirth [Fatal]
  - Foetal exposure during pregnancy [Unknown]
